FAERS Safety Report 8995576 (Version 1)
Quarter: 2013Q1

REPORT INFORMATION
  Report Type: Spontaneous
  Country: US (occurrence: US)
  Receive Date: 20130103
  Receipt Date: 20130103
  Transmission Date: 20140127
  Serious: No
  Sender: FDA-Public Use
  Company Number: US-ABBOTT-12P-163-1019389-00

PATIENT
  Sex: Male

DRUGS (3)
  1. SYNTHROID [Suspect]
     Indication: PRODUCT USED FOR UNKNOWN INDICATION
     Dates: start: 2009, end: 2009
  2. SYNTHROID [Suspect]
     Dosage: USED FOR FOUR OR FIVE DAYS
     Dates: start: 201212, end: 201212
  3. CYTOMEL [Suspect]
     Indication: PRODUCT USED FOR UNKNOWN INDICATION

REACTIONS (3)
  - Wrong drug administered [Recovered/Resolved]
  - Blood pressure increased [Recovered/Resolved]
  - Expired drug administered [Recovered/Resolved]
